FAERS Safety Report 12400048 (Version 2)
Quarter: 2016Q2

REPORT INFORMATION
  Report Type: Spontaneous
  Country: US (occurrence: US)
  Receive Date: 20160524
  Receipt Date: 20160531
  Transmission Date: 20160815
  Serious: Yes (Other)
  Sender: FDA-Public Use
  Company Number: US-MDT-ADR-2016-00930

PATIENT
  Sex: Female

DRUGS (1)
  1. LIORESAL [Suspect]
     Active Substance: BACLOFEN
     Dosage: 700MCG/DAY
     Route: 037
     Dates: start: 20160415, end: 20160517

REACTIONS (2)
  - No therapeutic response [Recovered/Resolved]
  - Muscle spasticity [Recovered/Resolved]
